FAERS Safety Report 5153449-6 (Version None)
Quarter: 2006Q4

REPORT INFORMATION
  Report Type: 
  Country: None (occurrence: None)
  Receive Date: 20061117
  Receipt Date: 20061108
  Transmission Date: 20070319
  Serious: Yes (Hospitalization)
  Sender: FDA-Public Use
  Company Number: FR-ABBOTT-06P-056-0349640-00

PATIENT
  Age: 6 Year
  Sex: Male

DRUGS (5)
  1. MICROPAKINE GRANULES [Suspect]
     Indication: CONVULSION
     Route: 048
     Dates: start: 20060620, end: 20060928
  2. MICROPAKINE GRANULES [Suspect]
     Route: 048
     Dates: start: 20060101, end: 20060619
  3. MICROPAKINE GRANULES [Suspect]
     Route: 048
     Dates: start: 20060929, end: 20061001
  4. CLONAZEPAM [Concomitant]
     Indication: DRUG USE FOR UNKNOWN INDICATION
     Dates: start: 20061002, end: 20061006
  5. CLOBAZAM [Concomitant]
     Indication: DRUG USE FOR UNKNOWN INDICATION
     Dates: start: 20060929

REACTIONS (5)
  - DYSKINESIA [None]
  - ERUCTATION [None]
  - PANCREATITIS ACUTE [None]
  - SCREAMING [None]
  - THROAT TIGHTNESS [None]
